FAERS Safety Report 16071584 (Version 1)
Quarter: 2019Q1

REPORT INFORMATION
  Report Type: Spontaneous
  Country: US (occurrence: US)
  Receive Date: 20190213
  Receipt Date: 20190213
  Transmission Date: 20190418
  Serious: No
  Sender: FDA-Public Use
  Company Number: None

PATIENT
  Age: 58 Year
  Sex: Female

DRUGS (1)
  1. INLYTA [Suspect]
     Active Substance: AXITINIB
     Dates: start: 20190213

REACTIONS (5)
  - Headache [None]
  - Central nervous system lesion [None]
  - Cerebral haemorrhage [None]
  - Amnesia [None]
  - Asthenia [None]

NARRATIVE: CASE EVENT DATE: 20190213
